FAERS Safety Report 4576345-1 (Version None)
Quarter: 2005Q1

REPORT INFORMATION
  Report Type: 
  Country: None (occurrence: None)
  Receive Date: 20050119
  Receipt Date: 20040712
  Transmission Date: 20050727
  Serious: Yes (Hospitalization)
  Sender: FDA-Public Use
  Company Number: A03200402289

PATIENT
  Age: 30 Year
  Sex: Male
  Weight: 63.05 kg

DRUGS (4)
  1. PLAVIX [Suspect]
     Indication: ISCHAEMIC STROKE
     Dosage: 75 MG QD - ORAL
     Route: 048
     Dates: start: 20000101, end: 20020101
  2. SEVELAMER HYDROCHLORIDE [Concomitant]
  3. MULTI-VITAMINS [Concomitant]
  4. PHENYTOIN SODIUM [Concomitant]

REACTIONS (2)
  - COMA [None]
  - INTRACRANIAL HAEMATOMA [None]
